FAERS Safety Report 8273373-X (Version None)
Quarter: 2012Q2

REPORT INFORMATION
  Report Type: 
  Country: None (occurrence: None)
  Receive Date: 20120411
  Receipt Date: 20120330
  Transmission Date: 20120825
  Serious: Yes (Other)
  Sender: FDA-Public Use
  Company Number: AR-AMGEN-ARGSP2012003239

PATIENT
  Age: 48 Year
  Sex: Female
  Weight: 65 kg

DRUGS (4)
  1. LEFLUNOMIDE [Concomitant]
     Dosage: UNK
  2. T4 [Concomitant]
     Dosage: UNK
  3. DICLOFENAC SODIUM [Concomitant]
     Dosage: UNK
  4. ENBREL [Suspect]
     Indication: RHEUMATOID ARTHRITIS
     Dosage: 50 MG, WEEKLY
     Route: 058
     Dates: start: 20060914

REACTIONS (7)
  - DERMATITIS ALLERGIC [None]
  - DRUG INEFFECTIVE [None]
  - RHEUMATOID ARTHRITIS [None]
  - PRURITUS GENERALISED [None]
  - DERMATITIS [None]
  - HYPOKINESIA [None]
  - JOINT STIFFNESS [None]
